FAERS Safety Report 20040485 (Version 1)
Quarter: 2021Q4

REPORT INFORMATION
  Report Type: Spontaneous
  Country: US (occurrence: None)
  Receive Date: 20211106
  Receipt Date: 20211106
  Transmission Date: 20220303
  Serious: Yes (Disabling)
  Sender: FDA-Public Use
  Company Number: None

PATIENT
  Age: 42 Year
  Sex: Female
  Weight: 54 kg

DRUGS (1)
  1. NITROFURANTOIN [Suspect]
     Active Substance: NITROFURANTOIN
     Indication: Urinary tract infection
     Dosage: FREQUENCY : TWICE A DAY;?
     Route: 048
     Dates: start: 20211027, end: 20211031

REACTIONS (6)
  - Coccydynia [None]
  - Pain in extremity [None]
  - Pain in extremity [None]
  - Gait disturbance [None]
  - Discomfort [None]
  - Neuropathy peripheral [None]

NARRATIVE: CASE EVENT DATE: 20211027
